FAERS Safety Report 9771340 (Version 1)
Quarter: 2013Q4

REPORT INFORMATION
  Report Type: Spontaneous
  Country: IT (occurrence: IT)
  Receive Date: 20131218
  Receipt Date: 20131218
  Transmission Date: 20140711
  Serious: Yes (Hospitalization)
  Sender: FDA-Public Use
  Company Number: IT-MYLANLABS-113AS20130437

PATIENT
  Age: 69 Year
  Sex: Female

DRUGS (6)
  1. METFORMIN [Suspect]
     Indication: DIABETES MELLITUS
     Dosage: 2550 MG DAILY
     Route: 048
     Dates: start: 20130101, end: 20131108
  2. AMARYL [Suspect]
     Indication: DIABETES MELLITUS
     Dosage: 1.5 DF DAILY
     Route: 048
     Dates: start: 20130101, end: 20131108
  3. BENTELAN [Suspect]
     Indication: FACIAL PARESIS
     Dosage: 1 DF TOTAL
     Route: 030
     Dates: start: 20131108, end: 20131108
  4. NEBILOX [Concomitant]
     Indication: PRODUCT USED FOR UNKNOWN INDICATION
  5. TOTALIP [Concomitant]
     Indication: PRODUCT USED FOR UNKNOWN INDICATION
  6. GIANT [Concomitant]
     Indication: PRODUCT USED FOR UNKNOWN INDICATION

REACTIONS (2)
  - Hyperglycaemia [Unknown]
  - Tremor [Unknown]
